FAERS Safety Report 5892243-5 (Version None)
Quarter: 2008Q3

REPORT INFORMATION
  Report Type: 
  Country: None (occurrence: None)
  Receive Date: 20080919
  Receipt Date: 20080912
  Transmission Date: 20090109
  Serious: Yes (Other)
  Sender: FDA-Public Use
  Company Number: CHPA2008US13125

PATIENT
  Age: 69 Year
  Sex: Male

DRUGS (1)
  1. GAS-X EXTRA STRENGTH SOFTGELS (NCH) (SIMETHICONE) SOFT GELATIN CAPSULE [Suspect]
     Indication: FLATULENCE
     Dosage: 125 MG, BID, ORAL
     Route: 048
     Dates: start: 20080701, end: 20080701

REACTIONS (10)
  - ABDOMINAL PAIN [None]
  - BLADDER DISCOMFORT [None]
  - BLOOD GLUCOSE INCREASED [None]
  - BLOOD URINE PRESENT [None]
  - CYSTITIS [None]
  - DIZZINESS [None]
  - HAEMATEMESIS [None]
  - HAEMATOCHEZIA [None]
  - MEMORY IMPAIRMENT [None]
  - PAIN [None]
